FAERS Safety Report 4417795-3 (Version None)
Quarter: 2004Q2

REPORT INFORMATION
  Report Type: 
  Country: None (occurrence: None)
  Receive Date: 20040623
  Receipt Date: 20030715
  Transmission Date: 20050107
  Serious: Yes (Death, Hospitalization)
  Sender: FDA-Public Use
  Company Number: 2003_000067

PATIENT
  Age: 49 Year
  Sex: Male

DRUGS (2)
  1. DEPOCYT [Suspect]
     Indication: LYMPHATIC DISORDER
     Dosage: 50 MG
     Dates: start: 20030501, end: 20030101
  2. DEPOCYT [Suspect]
     Indication: MENINGITIS
     Dosage: 50 MG
     Dates: start: 20030501, end: 20030101

REACTIONS (1)
  - LYMPHOMA [None]
